FAERS Safety Report 16608847 (Version 1)
Quarter: 2019Q3

REPORT INFORMATION
  Report Type: Spontaneous
  Country: US (occurrence: US)
  Receive Date: 20190722
  Receipt Date: 20190722
  Transmission Date: 20191004
  Serious: No
  Sender: FDA-Public Use
  Company Number: US-PFIZER INC-2019309569

PATIENT
  Age: 50 Year
  Sex: Male

DRUGS (4)
  1. EUCRISA [Suspect]
     Active Substance: CRISABOROLE
     Indication: DERMATITIS ATOPIC
  2. CORTISONE [Suspect]
     Active Substance: CORTISONE
     Indication: ECZEMA
  3. CORTISONE [Suspect]
     Active Substance: CORTISONE
     Indication: DERMATITIS ATOPIC
  4. EUCRISA [Suspect]
     Active Substance: CRISABOROLE
     Indication: ECZEMA

REACTIONS (1)
  - Drug ineffective [Unknown]
